FAERS Safety Report 6598758-9 (Version None)
Quarter: 2010Q1

REPORT INFORMATION
  Report Type: 
  Country: None (occurrence: None)
  Receive Date: 20100224
  Receipt Date: 20100215
  Transmission Date: 20100710
  Serious: Yes (Hospitalization)
  Sender: FDA-Public Use
  Company Number: FR-PFIZER INC-2010008230

PATIENT
  Age: 55 Year
  Sex: Male

DRUGS (19)
  1. TAHOR [Suspect]
     Dosage: 10 MG, 1X/DAY
     Route: 048
  2. PREVISCAN [Suspect]
     Dosage: 10 MG, 1X/DAY
     Route: 048
     Dates: end: 20091019
  3. KARDEGIC [Suspect]
     Dosage: 75 MG, 1X/DAY
     Route: 048
  4. CORTANCYL [Suspect]
     Dosage: 5 MG, 1X/DAY
     Route: 048
  5. CORDARONE [Suspect]
     Dosage: 1 DF, 1X/DAY
  6. DAFALGAN [Suspect]
     Dosage: UNK
     Route: 048
  7. DIAMICRON [Concomitant]
  8. NOVOMIX [Concomitant]
  9. IMOVANE [Concomitant]
  10. NEXIUM [Concomitant]
  11. DIFFU K [Concomitant]
  12. TRIATEC [Concomitant]
  13. AMOXICILLIN [Concomitant]
  14. LASILIX [Concomitant]
  15. CHAMPIX [Concomitant]
  16. LYRICA [Concomitant]
  17. OXYCONTIN [Concomitant]
  18. FORLAX [Concomitant]
  19. OXYNORM [Concomitant]

REACTIONS (2)
  - ANAEMIA [None]
  - GASTROINTESTINAL HAEMORRHAGE [None]
